FAERS Safety Report 10522557 (Version 1)
Quarter: 2014Q4

REPORT INFORMATION
  Report Type: Spontaneous
  Country: US (occurrence: US)
  Receive Date: 20141016
  Receipt Date: 20141016
  Transmission Date: 20150528
  Serious: No
  Sender: FDA-Public Use
  Company Number: US-BAYER-2014-144344

PATIENT
  Age: 35 Year
  Sex: Female

DRUGS (1)
  1. FINACEA [Suspect]
     Active Substance: AZELAIC ACID
     Indication: CHLOASMA
     Dosage: UNK
     Dates: start: 20140627

REACTIONS (5)
  - Product use issue [None]
  - Drug ineffective [None]
  - Oral herpes [None]
  - Skin burning sensation [None]
  - Feeling hot [None]
